FAERS Safety Report 4768291-5 (Version None)
Quarter: 2005Q3

REPORT INFORMATION
  Report Type: 
  Country: None (occurrence: None)
  Receive Date: 20050908
  Receipt Date: 20050707
  Transmission Date: 20060218
  Serious: No
  Sender: FDA-Public Use
  Company Number: A03200502046

PATIENT
  Sex: Female
  Weight: 81.6475 kg

DRUGS (1)
  1. ELOXATIN [Suspect]
     Indication: COLON CANCER STAGE III
     Dosage: 170 MG Q2W - INTRAVENOUS NOS
     Route: 042

REACTIONS (1)
  - HYPERAESTHESIA [None]
